FAERS Safety Report 21652781 (Version 5)
Quarter: 2023Q2

REPORT INFORMATION
  Report Type: Report from Study
  Country: US (occurrence: US)
  Receive Date: 20221128
  Receipt Date: 20230428
  Transmission Date: 20230722
  Serious: Yes (Hospitalization)
  Sender: FDA-Public Use
  Company Number: US-ABBVIE-22K-163-4535098-00

PATIENT
  Sex: Male

DRUGS (1)
  1. IMBRUVICA [Suspect]
     Active Substance: IBRUTINIB
     Indication: Chronic lymphocytic leukaemia
     Dosage: FORM STRENGTH : 140 MG
     Route: 048
     Dates: start: 20220528

REACTIONS (6)
  - Carpal tunnel syndrome [Unknown]
  - Skin fissures [Unknown]
  - Dry skin [Unknown]
  - Onychoclasis [Unknown]
  - Diarrhoea [Unknown]
  - Limb operation [Unknown]
